FAERS Safety Report 6689023-X (Version None)
Quarter: 2010Q2

REPORT INFORMATION
  Report Type: 
  Country: None (occurrence: None)
  Receive Date: 20100420
  Receipt Date: 20100409
  Transmission Date: 20101027
  Serious: Yes (Other)
  Sender: FDA-Public Use
  Company Number: PHEH2006US08864

PATIENT
  Sex: Male

DRUGS (19)
  1. ZOMETA [Suspect]
     Dosage: UNK
     Dates: start: 20030101
  2. VINCRISTINE [Concomitant]
     Dosage: UNK
     Dates: start: 20030101
  3. ADRIAMYCIN PFS [Concomitant]
     Dosage: UNK
     Dates: start: 20030101
  4. DEXAMETHASONE ^KRKA^ [Concomitant]
     Dosage: UNK
     Dates: start: 20030101
  5. COUMADIN [Concomitant]
  6. THALIDOMIDE [Concomitant]
     Dosage: UNK
  7. NEURONTIN [Concomitant]
  8. VIOXX [Concomitant]
  9. HYDROCODONE BITARTRATE [Concomitant]
  10. PROTONIX [Concomitant]
  11. GEMFIBROZIL [Concomitant]
  12. AVELOX [Concomitant]
  13. IBUPROFEN [Concomitant]
     Dosage: 800 MG, TID
  14. CHLORTHALIDONE [Concomitant]
     Dosage: 25 MG QD
  15. PROCRIT                            /00909301/ [Concomitant]
  16. ASPIRIN [Concomitant]
  17. MAGNESIUM [Concomitant]
  18. LOPRESSOR [Concomitant]
  19. NITROGLYCERIN [Concomitant]

REACTIONS (35)
  - ACTINOMYCOSIS [None]
  - AMNESIA [None]
  - AMYLOIDOSIS [None]
  - ANXIETY [None]
  - ARTHRALGIA [None]
  - ATRIAL FIBRILLATION [None]
  - AUTONOMIC NERVOUS SYSTEM IMBALANCE [None]
  - BALANCE DISORDER [None]
  - BONE OPERATION [None]
  - CATHETERISATION CARDIAC [None]
  - CHEST DISCOMFORT [None]
  - DEBRIDEMENT [None]
  - DENTAL CARIES [None]
  - DENTAL FISTULA [None]
  - DYSPNOEA [None]
  - FLUSHING [None]
  - INJURY [None]
  - LUMBAR SPINAL STENOSIS [None]
  - MICROVASCULAR ANGINA [None]
  - NECK PAIN [None]
  - OEDEMA PERIPHERAL [None]
  - OPEN WOUND [None]
  - OSTEOMYELITIS [None]
  - OSTEONECROSIS [None]
  - PAIN [None]
  - PAIN IN JAW [None]
  - PALPITATIONS [None]
  - PERIODONTITIS [None]
  - SINUS TACHYCARDIA [None]
  - SINUSITIS [None]
  - TOOTH DISORDER [None]
  - TOOTH EXTRACTION [None]
  - TOOTH IMPACTED [None]
  - VASCULAR PUNCTURE SITE SEALING [None]
  - VISUAL ACUITY REDUCED [None]
